FAERS Safety Report 4767552-3 (Version None)
Quarter: 2005Q3

REPORT INFORMATION
  Report Type: 
  Country: None (occurrence: None)
  Receive Date: 20050913
  Receipt Date: 20030925
  Transmission Date: 20060218
  Serious: Yes (Hospitalization, Disabling, Other)
  Sender: FDA-Public Use
  Company Number: US-MERCK-0309USA02688

PATIENT
  Age: 34 Year
  Sex: Male
  Weight: 61 kg

DRUGS (1)
  1. VIOXX [Suspect]
     Indication: TOOTHACHE
     Route: 048
     Dates: start: 20010912, end: 20010926

REACTIONS (14)
  - CATHETER SITE INFECTION [None]
  - CHEST WALL ABSCESS [None]
  - EMOTIONAL DISTRESS [None]
  - ENCEPHALITIS BRAIN STEM [None]
  - HERPES OPHTHALMIC [None]
  - HERPES ZOSTER [None]
  - HODGKIN'S DISEASE NODULAR SCLEROSIS STAGE UNSPECIFIED [None]
  - INTERVERTEBRAL DISC DISPLACEMENT [None]
  - LACUNAR INFARCTION [None]
  - MENINGITIS ASEPTIC [None]
  - MENINGITIS HERPES [None]
  - PARANEOPLASTIC SYNDROME [None]
  - PRURITUS [None]
  - STAPHYLOCOCCAL SEPSIS [None]
